FAERS Safety Report 11496101 (Version 1)
Quarter: 2015Q3

REPORT INFORMATION
  Report Type: Spontaneous
  Country: FR (occurrence: FR)
  Receive Date: 20150911
  Receipt Date: 20150911
  Transmission Date: 20151125
  Serious: Yes (Hospitalization, Other)
  Sender: FDA-Public Use
  Company Number: FR-ABBVIE-15K-056-1458958-00

PATIENT
  Sex: Female

DRUGS (5)
  1. COLPRONE [Concomitant]
     Active Substance: MEDROGESTONE
     Indication: ENDOMETRIOSIS
     Route: 048
  2. NUROFEN [Concomitant]
     Active Substance: IBUPROFEN
     Indication: PRODUCT USED FOR UNKNOWN INDICATION
     Dosage: TWO TABLETS EVERY 2 HOURS
     Route: 048
  3. HUMIRA [Suspect]
     Active Substance: ADALIMUMAB
     Indication: COLITIS ULCERATIVE
     Route: 058
     Dates: start: 201409, end: 201504
  4. DAFALGAN [Concomitant]
     Active Substance: ACETAMINOPHEN
     Indication: PRODUCT USED FOR UNKNOWN INDICATION
     Dosage: 2 CAPSULE EVERY 6 HOURS
     Route: 048
  5. SERETIDE [Concomitant]
     Active Substance: FLUTICASONE FUROATE\SALMETEROL XINAFOATE
     Indication: PRODUCT USED FOR UNKNOWN INDICATION
     Dosage: 125 MICROGRAM/25 MICROGRAM/DOSE
     Route: 055

REACTIONS (5)
  - Pulmonary tuberculosis [Recovered/Resolved]
  - Hyperhidrosis [Unknown]
  - Pneumonia [Not Recovered/Not Resolved]
  - Chills [Unknown]
  - Chest pain [Unknown]

NARRATIVE: CASE EVENT DATE: 2015
